FAERS Safety Report 13533388 (Version 6)
Quarter: 2019Q1

REPORT INFORMATION
  Report Type: Report from Study
  Country: US (occurrence: US)
  Receive Date: 20170510
  Receipt Date: 20190211
  Transmission Date: 20190417
  Serious: Yes (Death, Hospitalization, Other)
  Sender: FDA-Public Use
  Company Number: US-ACTELION-A-US2017-153542

PATIENT
  Age: 69 Year
  Sex: Male
  Weight: 71.2 kg

DRUGS (5)
  1. RENVELA [Concomitant]
     Active Substance: SEVELAMER CARBONATE
  2. OPSUMIT [Suspect]
     Active Substance: MACITENTAN
     Indication: PULMONARY ARTERIAL HYPERTENSION
     Dosage: 10 MG, QD
     Route: 048
  3. ADEMPAS [Suspect]
     Active Substance: RIOCIGUAT
     Indication: PRODUCT USED FOR UNKNOWN INDICATION
     Route: 065
  4. AMLODIPINE [Concomitant]
     Active Substance: AMLODIPINE BESYLATE
  5. VELPHORO [Concomitant]
     Active Substance: FERRIC OXYHYDROXIDE

REACTIONS (7)
  - Dialysis [Unknown]
  - Procedural hypotension [Unknown]
  - Sepsis [Fatal]
  - Blood pressure fluctuation [Unknown]
  - Blood phosphorus abnormal [Unknown]
  - Hospitalisation [Unknown]
  - Hypotension [Unknown]
